FAERS Safety Report 8210015-3 (Version None)
Quarter: 2012Q1

REPORT INFORMATION
  Report Type: 
  Country: None (occurrence: None)
  Receive Date: 20120314
  Receipt Date: 20111101
  Transmission Date: 20120608
  Serious: No
  Sender: FDA-Public Use
  Company Number: US-ASTRAZENECA-2011SE53303

PATIENT
  Age: 85 Year
  Sex: Female
  Weight: 54.4 kg

DRUGS (5)
  1. BONIVA [Concomitant]
     Indication: BONE DENSITY ABNORMAL
  2. ASPIRIN [Concomitant]
  3. METOPROLOL SUCCINATE [Suspect]
     Indication: CHEST DISCOMFORT
     Route: 048
     Dates: start: 20110805, end: 20110901
  4. REGULAR CENTRUM [Concomitant]
  5. CALCIUM CARBONATE [Concomitant]

REACTIONS (5)
  - SOMNOLENCE [None]
  - PAIN [None]
  - HYPERSOMNIA [None]
  - DIZZINESS [None]
  - FALL [None]
